FAERS Safety Report 10258234 (Version 1)
Quarter: 2014Q2

REPORT INFORMATION
  Report Type: Report from Study
  Country: BR (occurrence: BR)
  Receive Date: 20140625
  Receipt Date: 20140625
  Transmission Date: 20141212
  Serious: Yes (Death, Other)
  Sender: FDA-Public Use
  Company Number: PHHY2014BR078073

PATIENT
  Age: 96 Year
  Sex: Male
  Weight: 77 kg

DRUGS (2)
  1. DIOVAN [Suspect]
     Indication: HYPERTENSION
     Dosage: 1 DF, DAILY
     Route: 048
  2. DIOCOMB SI [Suspect]
     Indication: HYPERTENSION
     Dosage: 1 DF, DAILY
     Route: 048

REACTIONS (6)
  - Death [Fatal]
  - Pulmonary oedema [Unknown]
  - Skin cancer [Unknown]
  - Skin wound [Unknown]
  - Pigmentation disorder [Unknown]
  - Concomitant disease aggravated [Unknown]
